FAERS Safety Report 10397595 (Version 2)
Quarter: 2014Q4

REPORT INFORMATION
  Report Type: Report from Study
  Country: FR (occurrence: FR)
  Receive Date: 20140821
  Receipt Date: 20141028
  Transmission Date: 20150528
  Serious: Yes (Other)
  Sender: FDA-Public Use
  Company Number: FR-AMGEN-FRACT2014062556

PATIENT
  Age: 75 Year
  Sex: Female

DRUGS (7)
  1. LEVOFOLINATE [Concomitant]
     Active Substance: LEVOLEUCOVORIN CALCIUM
     Indication: OESOPHAGEAL ADENOCARCINOMA
     Dosage: 382 MG, UNK
     Route: 042
     Dates: start: 20130319
  2. KALEORID LP [Concomitant]
     Indication: HYPOKALAEMIA
     Dosage: UNK
     Route: 048
     Dates: start: 20130501
  3. TOLEXINE                           /00055701/ [Concomitant]
     Indication: RASH
     Dosage: UNK
     Route: 048
     Dates: start: 20130606
  4. PANITUMUMAB [Suspect]
     Active Substance: PANITUMUMAB
     Indication: OESOPHAGEAL ADENOCARCINOMA
     Dosage: 500 MG, UNK
     Route: 042
     Dates: start: 20130319
  5. OXALIPLATINE [Concomitant]
     Active Substance: OXALIPLATIN
     Indication: OESOPHAGEAL ADENOCARCINOMA
     Dosage: 167.5 MG, UNK
     Route: 042
     Dates: start: 20130319
  6. 5 FU [Concomitant]
     Active Substance: FLUOROURACIL
     Indication: OESOPHAGEAL ADENOCARCINOMA
     Dosage: 775 MG, UNK
     Route: 040
     Dates: start: 20130319
  7. 5 FU [Concomitant]
     Active Substance: FLUOROURACIL
     Dosage: 4576 MG, UNK
     Route: 042
     Dates: start: 20130319

REACTIONS (1)
  - Leukopenia [Recovered/Resolved]

NARRATIVE: CASE EVENT DATE: 20130617
